FAERS Safety Report 8718527 (Version 4)
Quarter: 2013Q2

REPORT INFORMATION
  Report Type: Report from Study
  Country: JP (occurrence: JP)
  Receive Date: 20120810
  Receipt Date: 20130517
  Transmission Date: 20140414
  Serious: Yes (Other)
  Sender: FDA-Public Use
  Company Number: JP-009507513-2012SP030075

PATIENT
  Age: 69 Year
  Sex: Male
  Weight: 55 kg

DRUGS (16)
  1. PEGINTRON [Suspect]
     Indication: CHRONIC HEPATITIS C
     Dosage: 1.5 MICROGRAM PER KILOGRAM, QW
     Route: 058
     Dates: start: 20120406, end: 20120511
  2. PEGINTRON [Suspect]
     Dosage: 1.5 MICROGRAM PER KILOGRAM, QW
     Route: 058
     Dates: start: 20120622
  3. REBETOL [Suspect]
     Indication: CHRONIC HEPATITIS C
     Dosage: 600 MG, QD
     Route: 048
     Dates: start: 20120406, end: 20120416
  4. REBETOL [Suspect]
     Dosage: 400 MG, QD
     Route: 048
     Dates: start: 20120417, end: 20120427
  5. REBETOL [Suspect]
     Dosage: 200 MG, QD
     Route: 048
     Dates: start: 20120428, end: 20120517
  6. REBETOL [Suspect]
     Dosage: 200 MG, QD
     Route: 048
     Dates: start: 20120622
  7. TELAVIC [Suspect]
     Indication: CHRONIC HEPATITIS C
     Dosage: 2250 MG, QD
     Route: 048
     Dates: start: 20120406, end: 20120518
  8. NORVASC [Concomitant]
     Indication: PROPHYLAXIS
     Dosage: 2.5 MG, QD
     Route: 048
     Dates: end: 20120608
  9. NORVASC [Concomitant]
     Dosage: 5 UNK, UNK
     Route: 048
     Dates: start: 20120609
  10. BLOPRESS [Concomitant]
     Indication: PROPHYLAXIS
     Dosage: 8 MG, QD, POR
     Route: 048
  11. ZYLORIC [Concomitant]
     Indication: CHRONIC HEPATITIS C
     Dosage: 100 MG, QD,POR
     Route: 048
     Dates: start: 20120428, end: 20120503
  12. ZYLORIC [Concomitant]
     Indication: HYPERURICAEMIA
     Dosage: 200 MG, QD
     Route: 048
     Dates: start: 20120504, end: 20120525
  13. ZYLORIC [Concomitant]
     Dosage: 100 MG, QD,
     Route: 048
     Dates: start: 20120526
  14. RHYTHMY [Concomitant]
     Indication: INSOMNIA
     Dosage: 2 MG, QD
     Route: 048
     Dates: start: 20120504
  15. SULPRIDE [Concomitant]
     Indication: DECREASED APPETITE
     Dosage: 150 MG, QD
     Route: 048
     Dates: start: 20120511
  16. MARZULENE-S [Concomitant]
     Indication: PROPHYLAXIS
     Dosage: 1.5 G, QD, POR
     Route: 048
     Dates: start: 20120427

REACTIONS (5)
  - Anaemia [Recovering/Resolving]
  - Hyperuricaemia [Recovered/Resolved]
  - Renal impairment [Recovered/Resolved]
  - Decreased appetite [Recovered/Resolved]
  - Decreased appetite [Recovering/Resolving]
